FAERS Safety Report 15304635 (Version 1)
Quarter: 2018Q3

REPORT INFORMATION
  Report Type: Spontaneous
  Country: US (occurrence: US)
  Receive Date: 20180809
  Receipt Date: 20180809
  Transmission Date: 20181010
  Serious: Yes (Death, Life-Threatening, Disabling)
  Sender: FDA-Public Use
  Company Number: None

PATIENT
  Age: 29 Year
  Sex: Male
  Weight: 74.25 kg

DRUGS (1)
  1. PAXIL [Suspect]
     Active Substance: PAROXETINE HYDROCHLORIDE
     Indication: DRUG PRESCRIBING ERROR
     Route: 048
     Dates: start: 20080901, end: 20160817

REACTIONS (33)
  - Fatigue [None]
  - Restlessness [None]
  - Libido decreased [None]
  - Lethargy [None]
  - Heart rate irregular [None]
  - Feeling abnormal [None]
  - Temporomandibular joint syndrome [None]
  - Dyspnoea [None]
  - Cognitive disorder [None]
  - Bruxism [None]
  - Insomnia [None]
  - Completed suicide [None]
  - Depression [None]
  - Sedation [None]
  - Unevaluable event [None]
  - Drug withdrawal syndrome [None]
  - Malaise [None]
  - Palpitations [None]
  - Night sweats [None]
  - Disturbance in attention [None]
  - Mental impairment [None]
  - Heart rate increased [None]
  - Drug dependence [None]
  - Sleep disorder [None]
  - Sexual dysfunction [None]
  - Anxiety [None]
  - Hypophagia [None]
  - Decreased appetite [None]
  - Memory impairment [None]
  - Poor personal hygiene [None]
  - Asthenia [None]
  - Hyperhidrosis [None]
  - Loss of personal independence in daily activities [None]

NARRATIVE: CASE EVENT DATE: 20160817
